FAERS Safety Report 18981602 (Version 2)
Quarter: 2021Q2

REPORT INFORMATION
  Report Type: Report from Study
  Country: US (occurrence: US)
  Receive Date: 20210308
  Receipt Date: 20210604
  Transmission Date: 20210717
  Serious: Yes (Hospitalization, Other)
  Sender: FDA-Public Use
  Company Number: US-SA-2021SA077143

PATIENT
  Age: 52 Year
  Sex: Female

DRUGS (3)
  1. CLARITIN [Concomitant]
     Active Substance: LORATADINE
     Indication: SINUS DISORDER
  2. TERIFLUNOMIDE. [Suspect]
     Active Substance: TERIFLUNOMIDE
     Indication: MULTIPLE SCLEROSIS
     Dosage: 14 MG, QD
     Route: 048
     Dates: start: 20190514
  3. CLARITIN [Concomitant]
     Active Substance: LORATADINE
     Indication: ASTHMA

REACTIONS (5)
  - Cough [Not Recovered/Not Resolved]
  - Multiple sclerosis relapse [Unknown]
  - Sinusitis [Not Recovered/Not Resolved]
  - Throat clearing [Not Recovered/Not Resolved]
  - Facial paralysis [Recovered/Resolved]
